FAERS Safety Report 10257943 (Version 1)
Quarter: 2014Q2

REPORT INFORMATION
  Report Type: Spontaneous
  Country: DE (occurrence: DE)
  Receive Date: 20140625
  Receipt Date: 20140625
  Transmission Date: 20141212
  Serious: Yes (Other)
  Sender: FDA-Public Use
  Company Number: DE-BAYER-2014-094191

PATIENT
  Age: 62 Year
  Sex: Male
  Weight: 90 kg

DRUGS (1)
  1. GADOVIST [Suspect]
     Indication: RENAL MASS
     Dosage: 7.5 ML, ONCE
     Dates: start: 20140604, end: 20140604

REACTIONS (3)
  - Hyperhidrosis [Recovered/Resolved]
  - Somnolence [Recovered/Resolved]
  - Cardiovascular disorder [Recovered/Resolved]
